FAERS Safety Report 7444191-7 (Version None)
Quarter: 2011Q2

REPORT INFORMATION
  Report Type: 
  Country: None (occurrence: None)
  Receive Date: 20110419
  Receipt Date: 20110415
  Transmission Date: 20111010
  Serious: Yes (Other)
  Sender: FDA-Public Use
  Company Number: CHL-AE-2011-LAM-001

PATIENT
  Age: 10 Year
  Sex: Female

DRUGS (2)
  1. CLONAZEPAM [Concomitant]
  2. LAMOTRIGINE [Suspect]
     Indication: CONVULSION
     Dosage: 20-25 MG, DAILY

REACTIONS (5)
  - IRRITABILITY [None]
  - OCULOGYRIC CRISIS [None]
  - CEREBELLAR ATROPHY [None]
  - TREMOR [None]
  - CEREBRAL ATROPHY [None]
